FAERS Safety Report 5833105-9 (Version None)
Quarter: 2008Q3

REPORT INFORMATION
  Report Type: 
  Country: None (occurrence: None)
  Receive Date: 20080801
  Receipt Date: 20080716
  Transmission Date: 20090109
  Serious: Yes (Hospitalization)
  Sender: FDA-Public Use
  Company Number: 2008MB000083

PATIENT
  Age: 53 Year
  Sex: Female
  Weight: 79.3795 kg

DRUGS (4)
  1. KEFLEX [Suspect]
     Indication: ANTIBIOTIC PROPHYLAXIS
     Dosage: 750 MG; BID
     Dates: start: 20080707
  2. LOVASTATIN [Concomitant]
  3. LISINOPRIL [Concomitant]
  4. METOPROLOL TARTRATE [Concomitant]

REACTIONS (2)
  - DRUG HYPERSENSITIVITY [None]
  - URINARY RETENTION [None]
